FAERS Safety Report 7875170-3 (Version None)
Quarter: 2011Q4

REPORT INFORMATION
  Report Type: 
  Country: None (occurrence: None)
  Receive Date: 20111031
  Receipt Date: 20111020
  Transmission Date: 20120403
  Serious: No
  Sender: FDA-Public Use
  Company Number: US-BIOGENIDEC-2011BI040215

PATIENT
  Age: 60 Year
  Sex: Female

DRUGS (4)
  1. GLIMEPIRIDE [Concomitant]
     Indication: DIABETES MELLITUS
  2. STEROID INJECTION [Concomitant]
     Indication: LUMBAR SPINAL STENOSIS
     Dates: start: 20111003, end: 20111003
  3. AVONEX [Suspect]
     Indication: MULTIPLE SCLEROSIS
     Route: 030
     Dates: start: 20101101
  4. ACTOS [Concomitant]
     Indication: DIABETES MELLITUS

REACTIONS (4)
  - FALL [None]
  - WHITE BLOOD CELL COUNT DECREASED [None]
  - BLOOD GLUCOSE INCREASED [None]
  - EAR INFECTION [None]
